FAERS Safety Report 6478201 (Version 1)
Quarter: 2020Q3

REPORT INFORMATION
  Report Type: Report from Study
  Country: JP (occurrence: JP)
  Receive Date: 20071130
  Receipt Date: 20071130
  Transmission Date: 20201104
  Serious: Yes (Death, Other)
  Sender: FDA-Public Use
  Company Number: JP-JNJFOC-20071000360

PATIENT
  Age: 77 Year
  Sex: Male

DRUGS (8)
  1. DORIBAX [Suspect]
     Active Substance: DORIPENEM
     Route: 041
  2. UNSPECIFIED INGREDIENT [Concomitant]
     Active Substance: UNSPECIFIED INGREDIENT
     Route: 048
  3. DORIBAX [Suspect]
     Active Substance: DORIPENEM
     Indication: PNEUMONIA
     Route: 041
  4. DORIBAX [Suspect]
     Active Substance: DORIPENEM
     Route: 041
  5. TAMSULOSIN HYDROCHLORIDE. [Concomitant]
     Active Substance: TAMSULOSIN HYDROCHLORIDE
     Route: 048
  6. TERAZOSIN HYDROCHLORIDE. [Concomitant]
     Active Substance: TERAZOSIN HYDROCHLORIDE
     Route: 048
  7. CLEANAL [Concomitant]
     Route: 048
  8. CLARITHROMYCIN. [Concomitant]
     Active Substance: CLARITHROMYCIN
     Indication: PNEUMONIA
     Route: 048

REACTIONS (1)
  - Hyponatraemia [Recovered/Resolved]

NARRATIVE: CASE EVENT DATE: 20070501
